FAERS Safety Report 6470865-0 (Version None)
Quarter: 2009Q4

REPORT INFORMATION
  Report Type: 
  Country: None (occurrence: None)
  Receive Date: 20091203
  Receipt Date: 20080123
  Transmission Date: 20100525
  Serious: Yes (Other)
  Sender: FDA-Public Use
  Company Number: US-ELI_LILLY_AND_COMPANY-US200801005099

PATIENT
  Sex: Female

DRUGS (3)
  1. GLUCAGON [Suspect]
  2. HUMALOG [Suspect]
  3. LANTUS [Concomitant]

REACTIONS (1)
  - LOSS OF CONSCIOUSNESS [None]
